FAERS Safety Report 25927252 (Version 1)
Quarter: 2025Q4

REPORT INFORMATION
  Report Type: Spontaneous
  Country: US (occurrence: US)
  Receive Date: 20251015
  Receipt Date: 20251015
  Transmission Date: 20260118
  Serious: No
  Sender: SHIELD THERAPEUTICS
  Company Number: US-SHIELD THERAPEUTICS-US-STX-25-00329

PATIENT
  Age: 72 Year
  Sex: Female

DRUGS (4)
  1. ACCRUFER [Suspect]
     Active Substance: FERRIC MALTOL
     Indication: Serum ferritin decreased
     Dosage: UNK UNKNOWN, QD
     Route: 048
  2. EFUDEX [Concomitant]
     Active Substance: FLUOROURACIL
     Indication: Face injury
     Dosage: UNK UNKNOWN, UNK
     Route: 061
  3. DOVONEX [Concomitant]
     Active Substance: CALCIPOTRIENE
     Indication: Face injury
     Dosage: UNK UNK, UNK
     Route: 061
  4. EXCEDRIN [Concomitant]
     Active Substance: ACETAMINOPHEN\ASPIRIN\CAFFEINE
     Indication: Pain
     Dosage: UNK UNKNOWN, PRN
     Route: 048

REACTIONS (13)
  - Malaise [Unknown]
  - Muscular weakness [Unknown]
  - Muscle fatigue [Unknown]
  - Mobility decreased [Unknown]
  - Gait disturbance [Unknown]
  - Myalgia [Unknown]
  - Bone pain [Unknown]
  - Fatigue [Unknown]
  - Dizziness [Unknown]
  - Somnolence [Unknown]
  - Spinal disorder [Unknown]
  - Dyspepsia [Unknown]
  - Inappropriate schedule of product administration [Unknown]
